FAERS Safety Report 13798356 (Version 1)
Quarter: 2017Q3

REPORT INFORMATION
  Report Type: Spontaneous
  Country: US (occurrence: US)
  Receive Date: 20170727
  Receipt Date: 20170727
  Transmission Date: 20171127
  Serious: Yes (Hospitalization, Other)
  Sender: FDA-Public Use
  Company Number: US-SUN PHARMACEUTICAL INDUSTRIES LTD-2015US-98952

PATIENT
  Age: 20 Year
  Sex: Female

DRUGS (1)
  1. ACETAMINOPHEN. [Suspect]
     Active Substance: ACETAMINOPHEN
     Indication: PRODUCT USED FOR UNKNOWN INDICATION
     Dosage: 10 DF, SINGLE
     Route: 048
     Dates: start: 2010

REACTIONS (12)
  - Blood bilirubin unconjugated increased [Recovering/Resolving]
  - International normalised ratio increased [Recovering/Resolving]
  - Suicide attempt [Unknown]
  - Abdominal pain upper [Unknown]
  - Aspartate aminotransferase increased [Recovering/Resolving]
  - Vomiting [Unknown]
  - Intentional overdose [Unknown]
  - Toxicity to various agents [Unknown]
  - Alanine aminotransferase increased [Recovering/Resolving]
  - Blood bilirubin increased [Recovering/Resolving]
  - Nausea [Unknown]
  - Haemolysis [Unknown]

NARRATIVE: CASE EVENT DATE: 2010
